FAERS Safety Report 10184582 (Version 4)
Quarter: 2014Q3

REPORT INFORMATION
  Report Type: Report from Study
  Country: IL (occurrence: IL)
  Receive Date: 20140521
  Receipt Date: 20140716
  Transmission Date: 20150326
  Serious: Yes (Hospitalization)
  Sender: FDA-Public Use
  Company Number: IL-ROCHE-1280149

PATIENT
  Age: 69 Year
  Sex: Male
  Weight: 85 kg

DRUGS (15)
  1. SALICYLIC ACID [Concomitant]
     Active Substance: SALICYLIC ACID
     Indication: HYPERKERATOSIS
     Route: 065
     Dates: start: 20131029, end: 20140427
  2. BIFONAZOLE [Concomitant]
     Active Substance: BIFONAZOLE
     Route: 065
     Dates: start: 20140105, end: 20140622
  3. VEMURAFENIB [Suspect]
     Active Substance: VEMURAFENIB
     Indication: MALIGNANT MELANOMA
     Dosage: DATE OF MOST RECENT DOSE PRIOR TO AE ONSET : 960 MG ON 27/AUG/2013 AND 720 MG ON 14/MAY/2014.
     Route: 048
     Dates: start: 20130820
  4. CURCUMIN [Concomitant]
     Active Substance: CURCUMIN
     Route: 065
     Dates: start: 201305, end: 20130729
  5. OPTALGIN [Concomitant]
     Active Substance: METAMIZOLE
     Indication: PAIN
     Route: 065
     Dates: start: 201306, end: 20130825
  6. AREDIA [Concomitant]
     Active Substance: PAMIDRONATE DISODIUM
     Indication: METASTASES TO BONE
     Route: 065
     Dates: start: 20130523, end: 20140106
  7. SALICYLIC ACID [Concomitant]
     Active Substance: SALICYLIC ACID
     Route: 065
     Dates: start: 20140428
  8. CALTRATE [Concomitant]
     Active Substance: CALCIUM CARBONATE
     Route: 065
     Dates: start: 201306
  9. BLACK PEPPER. [Concomitant]
     Active Substance: BLACK PEPPER
     Route: 065
     Dates: start: 201305, end: 20130729
  10. REFRESH TEARS [Concomitant]
     Active Substance: CARBOXYMETHYLCELLULOSE SODIUM
     Indication: DRY EYE
     Route: 065
     Dates: start: 20130828, end: 20130828
  11. TARGIN [Concomitant]
     Active Substance: NALOXONE HYDROCHLORIDE\OXYCODONE HYDROCHLORIDE
     Indication: PAIN
     Route: 065
     Dates: start: 201306, end: 20130825
  12. CANNABIS [Concomitant]
     Active Substance: CANNABIS SATIVA SUBSP. INDICA TOP
     Route: 065
     Dates: start: 20131112
  13. BONDORMIN [Concomitant]
     Indication: SLEEP DISORDER
     Route: 065
     Dates: start: 20130901, end: 20130901
  14. CANNABIS [Concomitant]
     Active Substance: CANNABIS SATIVA SUBSP. INDICA TOP
     Indication: PAIN
     Route: 065
     Dates: start: 201307, end: 20130825
  15. LORIVAN [Concomitant]
     Indication: SLEEP DISORDER
     Route: 065
     Dates: start: 20130903, end: 20130919

REACTIONS (1)
  - Atrial flutter [Recovered/Resolved]

NARRATIVE: CASE EVENT DATE: 20140515
